FAERS Safety Report 12762172 (Version 2)
Quarter: 2016Q4

REPORT INFORMATION
  Report Type: Spontaneous
  Country: JP (occurrence: JP)
  Receive Date: 20160920
  Receipt Date: 20161021
  Transmission Date: 20170207
  Serious: Yes (Other)
  Sender: FDA-Public Use
  Company Number: JP-PFIZER INC-2016429872

PATIENT
  Age: 52 Year
  Sex: Female

DRUGS (1)
  1. ZITHROMAC SR 2G [Suspect]
     Active Substance: AZITHROMYCIN MONOHYDRATE
     Dosage: 2G, SINGLE BEFORE BEDTIME
     Route: 048

REACTIONS (3)
  - Melaena [Unknown]
  - Abdominal pain [Unknown]
  - Diarrhoea [Unknown]
